FAERS Safety Report 14100627 (Version 3)
Quarter: 2019Q1

REPORT INFORMATION
  Report Type: Report from Study
  Country: AR (occurrence: AR)
  Receive Date: 20171017
  Receipt Date: 20190119
  Transmission Date: 20190417
  Serious: Yes (Other)
  Sender: FDA-Public Use
  Company Number: PHHY2017AR152441

PATIENT
  Age: 30 Year
  Sex: Female

DRUGS (1)
  1. GILENYA [Suspect]
     Active Substance: FINGOLIMOD HYDROCHLORIDE
     Indication: MULTIPLE SCLEROSIS
     Dosage: 0.5 MG, QD (3 AND A HALF YEARS AGO)
     Route: 048

REACTIONS (4)
  - Pulmonary fibrosis [Unknown]
  - Breast cyst [Unknown]
  - Monoplegia [Unknown]
  - Bronchospasm [Unknown]

NARRATIVE: CASE EVENT DATE: 201711
